FAERS Safety Report 7434769-9 (Version None)
Quarter: 2011Q2

REPORT INFORMATION
  Report Type: 
  Country: None (occurrence: None)
  Receive Date: 20110415
  Receipt Date: 20110408
  Transmission Date: 20111010
  Serious: Yes (Other)
  Sender: FDA-Public Use
  Company Number: 2011SP001584

PATIENT
  Age: 17 Year
  Sex: Female

DRUGS (4)
  1. PARACETAMOL [Concomitant]
  2. IMPLANON [Suspect]
     Indication: CONTRACEPTION
     Dates: start: 20100428
  3. AMOXICILLIN [Concomitant]
  4. PROPRANOLOL HYDROCHLORIDE [Concomitant]

REACTIONS (1)
  - GRAND MAL CONVULSION [None]
